FAERS Safety Report 11871402 (Version 1)
Quarter: 2015Q4

REPORT INFORMATION
  Report Type: Spontaneous
  Country: US (occurrence: US)
  Receive Date: 20151228
  Receipt Date: 20151228
  Transmission Date: 20160305
  Serious: Yes (Death)
  Sender: FDA-Public Use
  Company Number: US-BAUSCH-BL-2015-030762

PATIENT
  Age: 79 Year
  Sex: Female

DRUGS (1)
  1. XENAZINE [Suspect]
     Active Substance: TETRABENAZINE
     Indication: HUNTINGTON^S DISEASE
     Dosage: TAKE 1 TABLET IN THE MORNING AND 3 TABLETS IN THE EVENING
     Route: 048
     Dates: start: 201411

REACTIONS (2)
  - Prescribed overdose [Unknown]
  - Death [Fatal]

NARRATIVE: CASE EVENT DATE: 20151206
